FAERS Safety Report 11609110 (Version 4)
Quarter: 2015Q4

REPORT INFORMATION
  Report Type: Spontaneous
  Country: JP (occurrence: JP)
  Receive Date: 20151007
  Receipt Date: 20151201
  Transmission Date: 20160304
  Serious: Yes (Hospitalization, Other)
  Sender: FDA-Public Use
  Company Number: JP-B.I. PHARMACEUTICALS,INC./RIDGEFIELD-2015-BI-54658NB

PATIENT
  Age: 70 Year
  Sex: Female
  Weight: 52.1 kg

DRUGS (7)
  1. CANDESARTAN [Concomitant]
     Active Substance: CANDESARTAN
     Indication: PRODUCT USED FOR UNKNOWN INDICATION
     Dosage: 4 MG
     Route: 048
  2. ROSUVASTATIN CALCIUM. [Concomitant]
     Active Substance: ROSUVASTATIN CALCIUM
     Indication: PRODUCT USED FOR UNKNOWN INDICATION
     Dosage: 2.5 MG
     Route: 048
  3. PRAZAXA [Suspect]
     Active Substance: DABIGATRAN ETEXILATE MESYLATE
     Indication: EMBOLIC CEREBRAL INFARCTION
     Dosage: 220 MG
     Route: 048
     Dates: start: 201207, end: 20121018
  4. AMLODIPINE [Concomitant]
     Active Substance: AMLODIPINE BESYLATE
     Indication: PRODUCT USED FOR UNKNOWN INDICATION
     Dosage: 5 MG
     Route: 048
  5. BUCILLAMINE [Concomitant]
     Active Substance: BUCILLAMINE
     Indication: PRODUCT USED FOR UNKNOWN INDICATION
     Route: 065
  6. PRAZAXA [Suspect]
     Active Substance: DABIGATRAN ETEXILATE MESYLATE
     Dosage: 300 MG
     Route: 048
     Dates: start: 20121018, end: 20121026
  7. ASPIRIN. [Concomitant]
     Active Substance: ASPIRIN
     Indication: PRODUCT USED FOR UNKNOWN INDICATION
     Dosage: 100 MG
     Route: 048

REACTIONS (7)
  - Metastases to central nervous system [Unknown]
  - Venous thrombosis limb [Not Recovered/Not Resolved]
  - Embolic cerebral infarction [Recovered/Resolved]
  - Trousseau^s syndrome [Unknown]
  - Venous thrombosis limb [Not Recovered/Not Resolved]
  - Lung adenocarcinoma [Unknown]
  - Embolic cerebral infarction [Recovered/Resolved]

NARRATIVE: CASE EVENT DATE: 201207
